FAERS Safety Report 6236981-3 (Version None)
Quarter: 2009Q2

REPORT INFORMATION
  Report Type: 
  Country: None (occurrence: None)
  Receive Date: 20090619
  Receipt Date: 20090309
  Transmission Date: 20091009
  Serious: No
  Sender: FDA-Public Use
  Company Number: US-ASTRAZENECA-2009UW06117

PATIENT
  Age: 62 Year
  Sex: Female

DRUGS (5)
  1. SYMBICORT [Suspect]
     Indication: DYSPNOEA
     Dosage: 160/4.5 MCG ONE PUFF BID
     Route: 055
     Dates: start: 20090305
  2. SINGULAIR [Concomitant]
  3. SPIRIVA [Concomitant]
  4. XANAX [Concomitant]
  5. METFORMIN HYDROCHLOROTHIAZIDE [Concomitant]

REACTIONS (4)
  - DIARRHOEA [None]
  - DRY MOUTH [None]
  - DYSPNOEA [None]
  - NERVOUSNESS [None]
